FAERS Safety Report 10089113 (Version 2)
Quarter: 2014Q2

REPORT INFORMATION
  Report Type: Spontaneous
  Country: US (occurrence: US)
  Receive Date: 20140421
  Receipt Date: 20140421
  Transmission Date: 20141212
  Serious: No
  Sender: FDA-Public Use
  Company Number: US-DRREDDYS-USA/USA/14/0038576

PATIENT
  Age: 14 Year
  Sex: Male
  Weight: 77.11 kg

DRUGS (2)
  1. ZENATANE [Suspect]
     Indication: ACNE
     Route: 048
     Dates: start: 20140113, end: 20140301
  2. IBUPROFEN [Concomitant]
     Indication: PRODUCT USED FOR UNKNOWN INDICATION
     Route: 065

REACTIONS (1)
  - Rash pruritic [Recovering/Resolving]
